FAERS Safety Report 5012104-3 (Version None)
Quarter: 2006Q2

REPORT INFORMATION
  Report Type: 
  Country: None (occurrence: None)
  Receive Date: 20060526
  Receipt Date: 20060517
  Transmission Date: 20061013
  Serious: Yes (Hospitalization)
  Sender: FDA-Public Use
  Company Number: FR-SOLVAY-00206001707

PATIENT
  Age: 70 Year
  Sex: Male

DRUGS (10)
  1. SELOKEN [Concomitant]
     Indication: ILL-DEFINED DISORDER
     Dosage: DAILY DOSE:  UNKNOWN
     Route: 065
     Dates: start: 20040212
  2. COVERSYL [Suspect]
     Indication: ILL-DEFINED DISORDER
     Dosage: DAILY DOSE:  UNKNOWN
     Route: 048
     Dates: start: 20040216
  3. LOVENOX [Suspect]
     Indication: ILL-DEFINED DISORDER
     Dosage: DAILY DOSE:  UNKNOWN
     Route: 058
     Dates: start: 20040212, end: 20040217
  4. ASPIRIN [Concomitant]
     Indication: ILL-DEFINED DISORDER
     Dosage: DAILY DOSE:  UNKNOWN
     Route: 065
     Dates: start: 20040412
  5. VISIPAQUE [Suspect]
     Indication: CORONARY ARTERY DISEASE
     Dosage: DAILY DOSE:  UNKNOWN
     Route: 042
     Dates: start: 20040213, end: 20040213
  6. VISIPAQUE [Suspect]
     Dosage: DAILY DOSE:  UNKNOWN
     Route: 042
     Dates: start: 20040224, end: 20040224
  7. TAHOR [Suspect]
     Indication: ILL-DEFINED DISORDER
     Dosage: DAILY DOSE:  UNKNOWN
     Route: 065
     Dates: start: 20040216
  8. CORVASAL [Suspect]
     Indication: CORONARY ARTERY DISEASE
     Dosage: DAILY DOSE:  UNKNOWN
     Route: 013
     Dates: start: 20040213, end: 20040213
  9. CORVASAL [Suspect]
     Dosage: DAILY DOSE:  UNKNOWN
     Route: 013
     Dates: start: 20040224, end: 20040224
  10. PLAVIX [Suspect]
     Indication: ILL-DEFINED DISORDER
     Dosage: DAILY DOSE:  UNKNOWN
     Route: 048
     Dates: start: 20040212

REACTIONS (3)
  - PSORIASIS [None]
  - RASH ERYTHEMATOUS [None]
  - RASH MACULAR [None]
